FAERS Safety Report 7712568-8 (Version None)
Quarter: 2011Q3

REPORT INFORMATION
  Report Type: 
  Country: None (occurrence: None)
  Receive Date: 20110826
  Receipt Date: 20110823
  Transmission Date: 20111222
  Serious: Yes (Other)
  Sender: FDA-Public Use
  Company Number: US-VERTEX PHARMACEUTICALS INC.-AE-2011-000855

PATIENT
  Sex: Female

DRUGS (6)
  1. CYMBALTA [Concomitant]
  2. HYDROXYZINE [Concomitant]
  3. INCIVEK [Suspect]
     Indication: HEPATITIS C
  4. PEGINTERFERON [Concomitant]
     Indication: HEPATITIS C
  5. RIBAVIRIN [Concomitant]
     Indication: HEPATITIS C
  6. NADOLOL [Concomitant]

REACTIONS (1)
  - ACUTE HEPATIC FAILURE [None]
